FAERS Safety Report 16112237 (Version 1)
Quarter: 2019Q1

REPORT INFORMATION
  Report Type: Spontaneous
  Country: US (occurrence: US)
  Receive Date: 20190221
  Receipt Date: 20190221
  Transmission Date: 20190418
  Serious: Yes (Hospitalization)
  Sender: FDA-Public Use
  Company Number: None

PATIENT
  Age: 66 Year

DRUGS (12)
  1. TACROLIMUS. [Suspect]
     Active Substance: TACROLIMUS
     Indication: RENAL TRANSPLANT
     Route: 048
     Dates: start: 20180828
  2. TACROLIMUS 0.5 [Suspect]
     Active Substance: TACROLIMUS
     Indication: RENAL TRANSPLANT
     Dosage: ?          OTHER DOSE:0.5MG;?
     Route: 048
     Dates: start: 20180828
  3. TACROLIMUS 0.5 [Suspect]
     Active Substance: TACROLIMUS
     Indication: PANCREAS TRANSPLANT
     Dosage: ?          OTHER DOSE:0.5MG;?
     Route: 048
     Dates: start: 20180828
  4. VALGANCICLOVIR 450MG [Concomitant]
     Active Substance: VALACYCLOVIR HYDROCHLORIDE
  5. PREDNISONE 5MG [Concomitant]
     Active Substance: PREDNISONE
  6. TACROLIMUS. [Suspect]
     Active Substance: TACROLIMUS
     Indication: PANCREAS TRANSPLANT
     Route: 048
     Dates: start: 20180828
  7. MYCOPHENOLIC  360MG DR [Suspect]
     Active Substance: MYCOPHENOLIC ACID
     Indication: RENAL TRANSPLANT
     Route: 048
     Dates: start: 20180828
  8. MULTIVITAMIN [Concomitant]
     Active Substance: VITAMINS
  9. ATORVASTATIN 40MG [Concomitant]
     Active Substance: ATORVASTATIN
  10. MYCOPHENOLIC  360MG DR [Suspect]
     Active Substance: MYCOPHENOLIC ACID
     Indication: PANCREAS TRANSPLANT
     Route: 048
     Dates: start: 20180828
  11. CARVEDILOL 25MG [Concomitant]
     Active Substance: CARVEDILOL
  12. PANTOPRAZOLA 40MG [Concomitant]

REACTIONS (1)
  - Localised infection [None]

NARRATIVE: CASE EVENT DATE: 20190220
